APPROVED DRUG PRODUCT: DOBUTAMINE HYDROCHLORIDE
Active Ingredient: DOBUTAMINE HYDROCHLORIDE
Strength: EQ 1.25GM BASE/100ML
Dosage Form/Route: INJECTABLE;INJECTION
Application: A074634 | Product #001
Applicant: HOSPIRA INC
Approved: Sep 27, 1996 | RLD: No | RS: No | Type: DISCN